FAERS Safety Report 13149476 (Version 4)
Quarter: 2017Q3

REPORT INFORMATION
  Report Type: Report from Study
  Country: US (occurrence: US)
  Receive Date: 20170124
  Receipt Date: 20170728
  Transmission Date: 20171127
  Serious: No
  Sender: FDA-Public Use
  Company Number: US-AMGEN-USASL2016174921

PATIENT
  Age: 76 Year
  Sex: Female

DRUGS (6)
  1. REPATHA [Suspect]
     Active Substance: EVOLOCUMAB
     Indication: HYPERLIPIDAEMIA
  2. LOSARTAN. [Concomitant]
     Active Substance: LOSARTAN
     Dosage: 25 MG, QD
     Route: 048
  3. TOPNAC [Concomitant]
     Dosage: 25 MG, QD
     Route: 048
  4. ASA [Concomitant]
     Active Substance: ASPIRIN
     Dosage: 81 MG, QD
     Route: 048
  5. REPATHA [Suspect]
     Active Substance: EVOLOCUMAB
     Indication: CORONARY ARTERY DISEASE
     Dosage: 140 MG, Q2WK
     Route: 058
     Dates: start: 201612
  6. REPATHA [Suspect]
     Active Substance: EVOLOCUMAB
     Indication: HIGH DENSITY LIPOPROTEIN ABNORMAL

REACTIONS (8)
  - Back pain [Recovered/Resolved]
  - Hyperhidrosis [Unknown]
  - Muscle spasms [Recovered/Resolved]
  - Upper respiratory tract infection [Unknown]
  - Abdominal discomfort [Unknown]
  - Abdominal pain [Unknown]
  - Oral herpes [Unknown]
  - Nausea [Unknown]

NARRATIVE: CASE EVENT DATE: 201612
